FAERS Safety Report 22662010 (Version 3)
Quarter: 2024Q1

REPORT INFORMATION
  Report Type: Spontaneous
  Country: FR (occurrence: None)
  Receive Date: 20230630
  Receipt Date: 20240304
  Transmission Date: 20240410
  Serious: Yes (Life-Threatening, Hospitalization, Other)
  Sender: FDA-Public Use
  Company Number: 2023A149201

PATIENT
  Age: 1006 Month
  Sex: Female
  Weight: 43 kg

DRUGS (16)
  1. IMFINZI [Suspect]
     Active Substance: DURVALUMAB
     Indication: Cholangiocarcinoma
     Dosage: 1500.0MG EVERY CYCLE
     Route: 042
     Dates: start: 20230504, end: 20230504
  2. IMFINZI [Suspect]
     Active Substance: DURVALUMAB
     Indication: HER2 positive biliary tract cancer
     Dosage: 1500.0MG EVERY CYCLE
     Route: 042
     Dates: start: 20230504, end: 20230504
  3. IMFINZI [Suspect]
     Active Substance: DURVALUMAB
     Indication: Cholangiocarcinoma
     Dosage: 1500.0MG EVERY CYCLE
     Route: 042
     Dates: start: 20230513, end: 20230513
  4. IMFINZI [Suspect]
     Active Substance: DURVALUMAB
     Indication: HER2 positive biliary tract cancer
     Dosage: 1500.0MG EVERY CYCLE
     Route: 042
     Dates: start: 20230513, end: 20230513
  5. CISPLATIN [Suspect]
     Active Substance: CISPLATIN
     Indication: Cholangiocarcinoma
     Dosage: 28.0MG EVERY CYCLE
     Route: 042
     Dates: start: 20230413, end: 20230413
  6. CISPLATIN [Suspect]
     Active Substance: CISPLATIN
     Indication: Biliary neoplasm
     Dosage: 28.0MG EVERY CYCLE
     Route: 042
     Dates: start: 20230413, end: 20230413
  7. CISPLATIN [Suspect]
     Active Substance: CISPLATIN
     Indication: Cholangiocarcinoma
     Dosage: 28.0MG EVERY CYCLE
     Route: 042
     Dates: start: 20230420, end: 20230420
  8. CISPLATIN [Suspect]
     Active Substance: CISPLATIN
     Indication: Biliary neoplasm
     Dosage: 28.0MG EVERY CYCLE
     Route: 042
     Dates: start: 20230420, end: 20230420
  9. CISPLATIN [Suspect]
     Active Substance: CISPLATIN
     Indication: Cholangiocarcinoma
     Dosage: 28.0MG EVERY CYCLE
     Route: 042
     Dates: start: 20230504, end: 20230504
  10. CISPLATIN [Suspect]
     Active Substance: CISPLATIN
     Indication: Biliary neoplasm
     Dosage: 28.0MG EVERY CYCLE
     Route: 042
     Dates: start: 20230504, end: 20230504
  11. GEMCITABINE [Suspect]
     Active Substance: GEMCITABINE
     Indication: Biliary neoplasm
     Dosage: 1128.0MG EVERY CYCLE
     Route: 042
     Dates: start: 20230420, end: 20230420
  12. GEMCITABINE [Suspect]
     Active Substance: GEMCITABINE
     Indication: Cholangiocarcinoma
     Dosage: 1128.0MG EVERY CYCLE
     Route: 042
     Dates: start: 20230420, end: 20230420
  13. GEMCITABINE [Suspect]
     Active Substance: GEMCITABINE
     Indication: Biliary neoplasm
     Dosage: 1128.0MG EVERY CYCLE
     Route: 042
     Dates: start: 20230413, end: 20230413
  14. GEMCITABINE [Suspect]
     Active Substance: GEMCITABINE
     Indication: Cholangiocarcinoma
     Dosage: 1128.0MG EVERY CYCLE
     Route: 042
     Dates: start: 20230413, end: 20230413
  15. GEMCITABINE [Suspect]
     Active Substance: GEMCITABINE
     Indication: Biliary neoplasm
     Dosage: 1128.0MG EVERY CYCLE
     Route: 042
     Dates: start: 20230504, end: 20230504
  16. GEMCITABINE [Suspect]
     Active Substance: GEMCITABINE
     Indication: Cholangiocarcinoma
     Dosage: 1128.0MG EVERY CYCLE
     Route: 042
     Dates: start: 20230504, end: 20230504

REACTIONS (1)
  - Peritonitis [Recovered/Resolved]

NARRATIVE: CASE EVENT DATE: 20230506
